FAERS Safety Report 13290010 (Version 3)
Quarter: 2017Q2

REPORT INFORMATION
  Report Type: Spontaneous
  Country: US (occurrence: US)
  Receive Date: 20170302
  Receipt Date: 20170523
  Transmission Date: 20170830
  Serious: No
  Sender: FDA-Public Use
  Company Number: US-009507513-1703USA000280

PATIENT
  Age: 55 Year
  Sex: Female
  Weight: 81.63 kg

DRUGS (2)
  1. BELSOMRA [Suspect]
     Active Substance: SUVOREXANT
     Indication: INSOMNIA
     Dosage: 1 TABLET (20 MG) AT BEDTIME
     Route: 048
     Dates: start: 20170202, end: 2017
  2. BELSOMRA [Suspect]
     Active Substance: SUVOREXANT
     Dosage: 1 TABLET (20 MG) AT BEDTIME
     Route: 048
     Dates: start: 201703

REACTIONS (4)
  - Discomfort [Unknown]
  - Drug dose omission [Unknown]
  - Product packaging quantity issue [Unknown]
  - Poor quality sleep [Unknown]

NARRATIVE: CASE EVENT DATE: 20170226
